FAERS Safety Report 16002109 (Version 1)
Quarter: 2019Q1

REPORT INFORMATION
  Report Type: Spontaneous
  Country: CN (occurrence: CN)
  Receive Date: 20190225
  Receipt Date: 20190225
  Transmission Date: 20190418
  Serious: Yes (Other)
  Sender: FDA-Public Use
  Company Number: CN-ELI_LILLY_AND_COMPANY-CN201902010365

PATIENT
  Age: 65 Year
  Sex: Male
  Weight: 47 kg

DRUGS (1)
  1. ERBITUX [Suspect]
     Active Substance: CETUXIMAB
     Indication: COLORECTAL CANCER
     Dosage: 700 MG, UNKNOWN
     Route: 042
     Dates: start: 20181230

REACTIONS (1)
  - Bone marrow failure [Recovered/Resolved]

NARRATIVE: CASE EVENT DATE: 20190102
